FAERS Safety Report 8599081-3 (Version None)
Quarter: 2012Q3

REPORT INFORMATION
  Report Type: 
  Country: None (occurrence: None)
  Receive Date: 20120806
  Receipt Date: 20120806
  Transmission Date: 20120928
  Serious: Yes (Life-Threatening, Disabling)
  Sender: FDA-Public Use
  Company Number: None

PATIENT
  Age: 50 Year
  Sex: Female
  Weight: 74.8435 kg

DRUGS (1)
  1. CIPROFLOXACIN [Suspect]
     Indication: URINARY TRACT INFECTION
     Dosage: 1 PILL 2 TIMES DAILY PO
     Route: 048
     Dates: start: 20111120, end: 20120530

REACTIONS (13)
  - TENDON RUPTURE [None]
  - FATIGUE [None]
  - BACK PAIN [None]
  - PARAESTHESIA [None]
  - HEADACHE [None]
  - BURNING SENSATION [None]
  - TENDON DISORDER [None]
  - HYPOAESTHESIA [None]
  - ARTHRALGIA [None]
  - MEMORY IMPAIRMENT [None]
  - FEELING ABNORMAL [None]
  - MYALGIA [None]
  - CHEST PAIN [None]
